FAERS Safety Report 4918028-1 (Version None)
Quarter: 2006Q1

REPORT INFORMATION
  Report Type: 
  Country: None (occurrence: None)
  Receive Date: 20060221
  Receipt Date: 20050525
  Transmission Date: 20060701
  Serious: Yes (Hospitalization, Other)
  Sender: FDA-Public Use
  Company Number: US-MERCK-0505USA03078

PATIENT
  Age: 85 Year
  Sex: Male
  Weight: 76 kg

DRUGS (3)
  1. VIOXX [Suspect]
     Indication: PAIN
     Route: 048
     Dates: start: 20011024, end: 20020606
  2. VIOXX [Suspect]
     Indication: ARTHRITIS
     Route: 048
     Dates: start: 20011024, end: 20020606
  3. ASPIRIN [Concomitant]
     Route: 065

REACTIONS (13)
  - APRAXIA [None]
  - CARDIAC ARREST [None]
  - CATARACT [None]
  - CEREBRAL ARTERY OCCLUSION [None]
  - CEREBROVASCULAR ACCIDENT [None]
  - CERVICAL MYELOPATHY [None]
  - DIABETES MELLITUS [None]
  - HEPATIC CIRRHOSIS [None]
  - HYPERTENSION [None]
  - LACUNAR INFARCTION [None]
  - LUMBAR SPINAL STENOSIS [None]
  - MULTI-ORGAN DISORDER [None]
  - TRANSIENT ISCHAEMIC ATTACK [None]
